FAERS Safety Report 5336045-7 (Version None)
Quarter: 2007Q2

REPORT INFORMATION
  Report Type: 
  Country: None (occurrence: None)
  Receive Date: 20070302
  Receipt Date: 20061227
  Transmission Date: 20071010
  Serious: No
  Sender: FDA-Public Use
  Company Number: PHEH2006US15545

PATIENT
  Age: 82 Year
  Sex: Male

DRUGS (2)
  1. ENABLEX [Suspect]
     Indication: POLLAKIURIA
     Dosage: SEE IMAGE
     Route: 048
  2. FLOMAX [Concomitant]

REACTIONS (1)
  - POLLAKIURIA [None]
